FAERS Safety Report 17662887 (Version 3)
Quarter: 2020Q2

REPORT INFORMATION
  Report Type: Report from Study
  Country: BE (occurrence: BE)
  Receive Date: 20200413
  Receipt Date: 20200601
  Transmission Date: 20200713
  Serious: No
  Sender: FDA-Public Use
  Company Number: BE-CELGENEUS-BEL-20200403107

PATIENT
  Age: 75 Year
  Sex: Male
  Weight: 61 kg

DRUGS (5)
  1. ZOLPIDEM [Concomitant]
     Active Substance: ZOLPIDEM TARTRATE
     Indication: INSOMNIA
     Dosage: 10 MG X 1 X 1 DAYS
     Route: 048
     Dates: start: 20200128
  2. FEDRATINIB [Suspect]
     Active Substance: FEDRATINIB
     Indication: MYELOFIBROSIS
     Dosage: 400 MG X 1 X 1 DAYS
     Route: 048
     Dates: start: 20200214, end: 20200414
  3. LAMOTRIGINE. [Concomitant]
     Active Substance: LAMOTRIGINE
     Indication: EPILEPSY
     Dosage: 50 MG X 2 X 1 DAYS
     Route: 048
     Dates: start: 20110504
  4. LORMETAZEPAM [Concomitant]
     Active Substance: LORMETAZEPAM
     Indication: INSOMNIA
     Dosage: 2 MG X 1 X 1 DAYS
     Route: 048
     Dates: start: 20191115, end: 20200221
  5. LOORTAN PLUS(100 MG LOSARTAN/25 MG HYDROCHLOORTHIAZIDE) [Concomitant]
     Indication: HYPERTENSION
     Dosage: 1 TABLET X 1 X 1 DAYS
     Route: 048
     Dates: start: 20130805

REACTIONS (1)
  - Vitamin B1 decreased [Recovered/Resolved]

NARRATIVE: CASE EVENT DATE: 20200313
